FAERS Safety Report 19795116 (Version 1)
Quarter: 2021Q3

REPORT INFORMATION
  Report Type: Spontaneous
  Country: US (occurrence: US)
  Receive Date: 20210903
  Receipt Date: 20210903
  Transmission Date: 20211014
  Serious: Yes (Death)
  Sender: FDA-Public Use
  Company Number: None

PATIENT
  Age: 45 Year
  Sex: Male
  Weight: 128.7 kg

DRUGS (1)
  1. BARICITINIB. [Suspect]
     Active Substance: BARICITINIB
     Indication: COVID-19
     Route: 048
     Dates: start: 20210823, end: 20210902

REACTIONS (10)
  - Endotracheal intubation complication [None]
  - Condition aggravated [None]
  - Thrombosis [None]
  - Obstructive shock [None]
  - Respiratory failure [None]
  - Hypoxia [None]
  - Procedure aborted [None]
  - Right ventricular failure [None]
  - Pulmonary embolism [None]
  - Cardiac arrest [None]

NARRATIVE: CASE EVENT DATE: 20210902
